FAERS Safety Report 15066635 (Version 5)
Quarter: 2024Q4

REPORT INFORMATION
  Report Type: Spontaneous
  Country: FR (occurrence: FR)
  Receive Date: 20180626
  Receipt Date: 20241108
  Transmission Date: 20250115
  Serious: Yes (Death, Other)
  Sender: NOVARTIS
  Company Number: PHHY2018FR025635

PATIENT
  Age: 34 Year
  Sex: Female

DRUGS (5)
  1. CYCLOSPORINE [Suspect]
     Active Substance: CYCLOSPORINE
     Indication: Immunosuppression
     Dosage: UNK
     Route: 065
  2. URSODIOL [Suspect]
     Active Substance: URSODIOL
     Indication: Prophylaxis
     Dosage: UNK
     Route: 065
  3. DEFIBROTIDE [Suspect]
     Active Substance: DEFIBROTIDE (BOVINE)
     Indication: Prophylaxis
     Dosage: 6.25 MG/KG, QID
     Route: 042
  4. DEFIBROTIDE [Suspect]
     Active Substance: DEFIBROTIDE (BOVINE)
     Dosage: 25 MG/KG PER DAY DIVIDED IN FOUR DAILY DOSES OF 6.25 MG/KG IN 5 % DEXTROSE OVER 2 H
     Route: 042
  5. DEFIBROTIDE [Suspect]
     Active Substance: DEFIBROTIDE (BOVINE)
     Dosage: 25 MG/KG PER DAY DIVIDED IN FOUR DAILY DOSES OF 6.25 MG/KG IN 5 % DEXTROSE OVER 2 H
     Route: 042

REACTIONS (3)
  - Venoocclusive liver disease [Fatal]
  - Deep vein thrombosis [Fatal]
  - Product use in unapproved indication [Fatal]
